FAERS Safety Report 7404201-X (Version None)
Quarter: 2011Q2

REPORT INFORMATION
  Report Type: 
  Country: None (occurrence: None)
  Receive Date: 20110408
  Receipt Date: 20110216
  Transmission Date: 20111010
  Serious: Yes (Hospitalization, Other)
  Sender: FDA-Public Use
  Company Number: US-BAYER-201035577NA

PATIENT
  Age: 23 Year
  Sex: Female
  Weight: 99 kg

DRUGS (6)
  1. BUTALBITAL [Concomitant]
     Indication: HEADACHE
  2. OCELLA [Suspect]
     Indication: CONTRACEPTION
     Dosage: UNK UNK, UNK
     Route: 048
     Dates: start: 20060701, end: 20071101
  3. CYCLOBENZAPRINE [Concomitant]
  4. MIDRIN [Concomitant]
  5. YAZ [Suspect]
     Indication: CONTRACEPTION
     Dosage: UNK UNK, UNK
     Route: 048
     Dates: start: 20060701, end: 20071101
  6. YASMIN [Suspect]
     Indication: CONTRACEPTION
     Dosage: UNK
     Dates: start: 20060701, end: 20071101

REACTIONS (2)
  - DEEP VEIN THROMBOSIS [None]
  - MENTAL DISORDER [None]
